FAERS Safety Report 17898728 (Version 4)
Quarter: 2020Q2

REPORT INFORMATION
  Report Type: Report from Study
  Country: None (occurrence: KR)
  Receive Date: 20200616
  Receipt Date: 20200623
  Transmission Date: 20200714
  Serious: Yes (Hospitalization)
  Sender: FDA-Public Use
  Company Number: KR-ABBVIE-20K-090-3440388-00

PATIENT
  Age: 54 Year
  Sex: Male
  Weight: 73 kg

DRUGS (29)
  1. NORVASC [Concomitant]
     Active Substance: AMLODIPINE BESYLATE
     Indication: HYPERTENSION
  2. LANSTON [Concomitant]
     Active Substance: LANSOPRAZOLE
     Indication: GASTRITIS PROPHYLAXIS
  3. NORZYME [Concomitant]
     Indication: GASTRITIS PROPHYLAXIS
  4. AIRTAL [Concomitant]
     Active Substance: ACECLOFENAC
     Indication: PRODUCT USED FOR UNKNOWN INDICATION
  5. PETHIDINE HCL [Concomitant]
     Indication: PRODUCT USED FOR UNKNOWN INDICATION
  6. VASCAM [Concomitant]
     Indication: PRODUCT USED FOR UNKNOWN INDICATION
  7. COBINOL [Concomitant]
     Indication: PREMEDICATION
     Route: 030
     Dates: start: 20200602, end: 20200602
  8. DONG-A GASTER [Concomitant]
     Dosage: 20 MG VIAL?DAILY DOSE 3 VIALS
     Route: 042
     Dates: start: 20200609, end: 20200609
  9. MAVIRET [Suspect]
     Active Substance: GLECAPREVIR\PIBRENTASVIR
     Indication: CHRONIC HEPATITIS C
     Route: 048
     Dates: start: 20200220, end: 20200222
  10. ALLELOCK [Concomitant]
     Active Substance: OLOPATADINE HYDROCHLORIDE
     Indication: PRURITUS
  11. PAZERON [Concomitant]
     Indication: PRODUCT USED FOR UNKNOWN INDICATION
  12. NADOXOL [Concomitant]
     Indication: PRODUCT USED FOR UNKNOWN INDICATION
  13. NASEA [Concomitant]
     Active Substance: RAMOSETRON HYDROCHLORIDE
     Indication: POSTOPERATIVE CARE
  14. ERDOS [Concomitant]
     Active Substance: ERDOSTEINE
     Indication: PNEUMONIA
  15. ATIVAN [Concomitant]
     Active Substance: LORAZEPAM
     Indication: ANXIETY DISORDER
  16. TWOLION [Concomitant]
     Indication: PRURITUS
     Route: 048
     Dates: start: 20200603, end: 20200608
  17. MAVIRET [Suspect]
     Active Substance: GLECAPREVIR\PIBRENTASVIR
     Route: 048
     Dates: start: 20200318, end: 20200612
  18. ULTRACET [Concomitant]
     Active Substance: ACETAMINOPHEN\TRAMADOL HYDROCHLORIDE
     Indication: PRODUCT USED FOR UNKNOWN INDICATION
  19. NASERON [Concomitant]
     Active Substance: RAMOSETRON HYDROCHLORIDE
     Indication: PRODUCT USED FOR UNKNOWN INDICATION
  20. STILNOX [Concomitant]
     Active Substance: ZOLPIDEM TARTRATE
     Indication: ANXIETY DISORDER
  21. MAGNESIUM OXIDE. [Concomitant]
     Active Substance: MAGNESIUM OXIDE
     Indication: CONSTIPATION PROPHYLAXIS
  22. TRITTICO [Concomitant]
     Active Substance: TRAZODONE HYDROCHLORIDE
     Indication: ANXIETY DISORDER
  23. STILLEN [Concomitant]
     Indication: GASTRITIS PROPHYLAXIS
  24. PERDIPINE [Concomitant]
     Active Substance: NICARDIPINE HYDROCHLORIDE
     Indication: HYPERTENSION
  25. VOLULYTE [Concomitant]
     Indication: MINERAL SUPPLEMENTATION
  26. COBINOL [Concomitant]
     Route: 030
     Dates: start: 20200609, end: 20200609
  27. MARINASOL [Concomitant]
     Indication: PRODUCT USED FOR UNKNOWN INDICATION
  28. TWOLION [Concomitant]
     Route: 048
     Dates: start: 20200610
  29. DONG-A GASTER [Concomitant]
     Indication: GASTRITIS PROPHYLAXIS
     Dosage: DAILY DOSE 3 VIALS
     Route: 042
     Dates: start: 20200602, end: 20200602

REACTIONS (2)
  - Intervertebral disc disorder [Recovered/Resolved]
  - Radiculopathy [Recovered/Resolved]

NARRATIVE: CASE EVENT DATE: 20200601
